FAERS Safety Report 12134735 (Version 2)
Quarter: 2016Q2

REPORT INFORMATION
  Report Type: Spontaneous
  Country: US (occurrence: US)
  Receive Date: 20160301
  Receipt Date: 20160531
  Transmission Date: 20160815
  Serious: Yes (Life-Threatening, Hospitalization, Other)
  Sender: FDA-Public Use
  Company Number: US-BAYER-2016-039862

PATIENT
  Age: 34 Year
  Sex: Female

DRUGS (4)
  1. SEROQUEL [Concomitant]
     Active Substance: QUETIAPINE FUMARATE
     Indication: DEPRESSION
     Dosage: UNK
     Dates: start: 2003, end: 2015
  2. GABAPENTIN. [Concomitant]
     Active Substance: GABAPENTIN
  3. PAXIL [Concomitant]
     Active Substance: PAROXETINE HYDROCHLORIDE
  4. MIRENA [Suspect]
     Active Substance: LEVONORGESTREL
     Indication: CONTRACEPTION
     Dosage: 20 MCG/24HR, CONT
     Route: 015
     Dates: start: 20100101, end: 20140923

REACTIONS (9)
  - Suicidal ideation [None]
  - Pregnancy with contraceptive device [None]
  - Drug ineffective [None]
  - Abdominal pain lower [None]
  - Uterine perforation [None]
  - Depression [None]
  - Anxiety [None]
  - Scar [None]
  - Infection [None]

NARRATIVE: CASE EVENT DATE: 201105
